FAERS Safety Report 13098416 (Version 1)
Quarter: 2017Q1

REPORT INFORMATION
  Report Type: Spontaneous
  Country: None (occurrence: US)
  Receive Date: 20170109
  Receipt Date: 20170109
  Transmission Date: 20170428
  Serious: No
  Sender: FDA-Public Use
  Company Number: US-MEDAC PHARMA, INC.-1061812

PATIENT
  Age: 10 Year
  Sex: Female
  Weight: 50 kg

DRUGS (3)
  1. FOLIC ACID. [Concomitant]
     Active Substance: FOLIC ACID
  2. RASUVO [Suspect]
     Active Substance: METHOTREXATE SODIUM
     Indication: JUVENILE IDIOPATHIC ARTHRITIS
     Route: 058
     Dates: start: 201508
  3. OXAPROZIN. [Concomitant]
     Active Substance: OXAPROZIN
     Dates: start: 201605

REACTIONS (2)
  - Vomiting [Recovered/Resolved]
  - Incorrect product storage [Recovered/Resolved]

NARRATIVE: CASE EVENT DATE: 20161217
